FAERS Safety Report 6760611-5 (Version None)
Quarter: 2010Q2

REPORT INFORMATION
  Report Type: 
  Country: None (occurrence: None)
  Receive Date: 20100608
  Receipt Date: 20100526
  Transmission Date: 20101027
  Serious: Yes (Hospitalization)
  Sender: FDA-Public Use
  Company Number: IT-PFIZER INC-2009189757

PATIENT
  Age: 13 Year
  Sex: Female
  Weight: 54 kg

DRUGS (4)
  1. SILDENAFIL CITRATE [Suspect]
     Indication: PULMONARY HYPERTENSION
     Dosage: 40 MG, 3X/DAY
     Route: 048
     Dates: start: 20050127
  2. TRACLEER [Concomitant]
     Route: 048
     Dates: start: 20080910
  3. FUROSEMIDE [Concomitant]
     Dates: start: 20081204
  4. KANRENOL [Concomitant]
     Dates: start: 20081204

REACTIONS (2)
  - CATHETER PLACEMENT [None]
  - MEDICAL DEVICE COMPLICATION [None]
